FAERS Safety Report 4373648-0 (Version None)
Quarter: 2004Q1

REPORT INFORMATION
  Report Type: 
  Country: None (occurrence: None)
  Receive Date: 20040305
  Receipt Date: 20031202
  Transmission Date: 20041129
  Serious: Yes (Other)
  Sender: FDA-Public Use
  Company Number: 2003UW15878

PATIENT

DRUGS (3)
  1. CRESTOR [Suspect]
     Dosage: 10 MG DAILY
  2. TOPROL-XL [Concomitant]
  3. ATACAND [Concomitant]

REACTIONS (1)
  - LYMPHADENOPATHY [None]
